FAERS Safety Report 26002794 (Version 2)
Quarter: 2025Q4

REPORT INFORMATION
  Report Type: Report from Study
  Country: EU (occurrence: EU)
  Receive Date: 20251106
  Receipt Date: 20251117
  Transmission Date: 20260118
  Serious: Yes (Other)
  Sender: EMD SERONO INC
  Company Number: EU-Merck Healthcare KGaA-2025055138

PATIENT
  Age: 37 Year
  Sex: Female

DRUGS (2)
  1. REBIF [Suspect]
     Active Substance: INTERFERON BETA-1A
     Indication: Multiple sclerosis
     Dates: start: 202011, end: 20250501
  2. REBIF [Suspect]
     Active Substance: INTERFERON BETA-1A

REACTIONS (3)
  - Abortion spontaneous [Recovered/Resolved]
  - Anaemia [Recovered/Resolved]
  - Maternal exposure during pregnancy [Recovered/Resolved]

NARRATIVE: CASE EVENT DATE: 20241230
